APPROVED DRUG PRODUCT: ERYTHROMYCIN
Active Ingredient: ERYTHROMYCIN
Strength: 2%
Dosage Form/Route: SWAB;TOPICAL
Application: A064128 | Product #001
Applicant: PHARMOBEDIENT CONSULTING LLC
Approved: Jul 3, 1996 | RLD: No | RS: No | Type: DISCN